FAERS Safety Report 16685020 (Version 4)
Quarter: 2020Q3

REPORT INFORMATION
  Report Type: Spontaneous
  Country: US (occurrence: US)
  Receive Date: 20190808
  Receipt Date: 20191104
  Transmission Date: 20201105
  Serious: Yes (Hospitalization)
  Sender: FDA-Public Use
  Company Number: US-CELGENEUS-USA-20190801745

PATIENT
  Age: 61 Year
  Sex: Male
  Weight: 68 kg

DRUGS (43)
  1. OLECLUMAB. [Suspect]
     Active Substance: OLECLUMAB
     Route: 042
     Dates: start: 20190510
  2. MEDI4736 (DURVALUMAB) [Suspect]
     Active Substance: DURVALUMAB
     Indication: PANCREATIC CARCINOMA METASTATIC
     Route: 042
     Dates: start: 20181120
  3. MEDI4736 (DURVALUMAB) [Suspect]
     Active Substance: DURVALUMAB
     Route: 042
     Dates: start: 20190510
  4. OXYCODONE [Concomitant]
     Active Substance: OXYCODONE
     Indication: CANCER PAIN
     Dosage: 5 MILLIGRAM
     Route: 065
     Dates: start: 20181102
  5. HYDROXYZINE [Concomitant]
     Active Substance: HYDROXYZINE HYDROCHLORIDE
     Indication: PRURITUS
     Dosage: 25 MILLIGRAM
     Route: 048
     Dates: start: 20181109
  6. ABRAXANE [Suspect]
     Active Substance: PACLITAXEL
     Indication: PANCREATIC CARCINOMA METASTATIC
     Dosage: 125 MILLIGRAM/SQ. METER
     Route: 041
     Dates: start: 20181120, end: 20181120
  7. ABRAXANE [Suspect]
     Active Substance: PACLITAXEL
     Route: 041
     Dates: start: 20190426
  8. ABRAXANE [Suspect]
     Active Substance: PACLITAXEL
     Route: 041
     Dates: start: 20190524
  9. OLECLUMAB. [Suspect]
     Active Substance: OLECLUMAB
     Indication: PANCREATIC CARCINOMA METASTATIC
     Dosage: 3000 MILLIGRAM
     Route: 042
     Dates: start: 20181120, end: 20181120
  10. OLECLUMAB. [Suspect]
     Active Substance: OLECLUMAB
     Route: 042
     Dates: start: 20190412
  11. GEMCITABINE. [Suspect]
     Active Substance: GEMCITABINE
     Route: 065
     Dates: start: 20190308
  12. ESCITALOPRAM [Concomitant]
     Active Substance: ESCITALOPRAM OXALATE
     Indication: ANXIETY
     Dosage: 10 MILLIGRAM
     Route: 048
     Dates: start: 20181207
  13. ABRAXANE [Suspect]
     Active Substance: PACLITAXEL
     Route: 041
     Dates: start: 20190308
  14. ABRAXANE [Suspect]
     Active Substance: PACLITAXEL
     Route: 041
     Dates: start: 20190510
  15. OLECLUMAB. [Suspect]
     Active Substance: OLECLUMAB
     Route: 042
     Dates: start: 20190308
  16. MEDI4736 (DURVALUMAB) [Suspect]
     Active Substance: DURVALUMAB
     Route: 042
     Dates: start: 20190308
  17. GEMCITABINE. [Suspect]
     Active Substance: GEMCITABINE
     Indication: PANCREATIC CARCINOMA METASTATIC
     Dosage: 1000 MILLIGRAM/SQ. METER
     Route: 042
     Dates: start: 20181120, end: 20181120
  18. PRAMIPEXOLE. [Concomitant]
     Active Substance: PRAMIPEXOLE
     Indication: RESTLESS LEGS SYNDROME
     Route: 048
     Dates: start: 20181015
  19. ABRAXANE [Suspect]
     Active Substance: PACLITAXEL
     Indication: PANCREATIC CARCINOMA METASTATIC
     Route: 041
     Dates: start: 20181130
  20. GEMCITABINE. [Suspect]
     Active Substance: GEMCITABINE
     Indication: PANCREATIC CARCINOMA METASTATIC
     Route: 065
     Dates: start: 20181207
  21. OLECLUMAB. [Suspect]
     Active Substance: OLECLUMAB
     Route: 042
     Dates: start: 20181207
  22. GEMCITABINE. [Suspect]
     Active Substance: GEMCITABINE
     Route: 065
     Dates: start: 20190222
  23. METFORMIN [Concomitant]
     Active Substance: METFORMIN HYDROCHLORIDE
     Indication: DIABETES MELLITUS
     Dosage: 1500 MILLIGRAM
     Route: 048
     Dates: start: 20181022
  24. ABRAXANE [Suspect]
     Active Substance: PACLITAXEL
     Indication: PANCREATIC CARCINOMA METASTATIC
     Route: 041
     Dates: start: 20181207
  25. ABRAXANE [Suspect]
     Active Substance: PACLITAXEL
     Indication: PANCREATIC CARCINOMA METASTATIC
     Route: 041
     Dates: start: 20190208
  26. ABRAXANE [Suspect]
     Active Substance: PACLITAXEL
     Route: 041
     Dates: start: 20190412
  27. GEMCITABINE. [Suspect]
     Active Substance: GEMCITABINE
     Indication: PANCREATIC CARCINOMA METASTATIC
     Route: 065
     Dates: start: 20181130
  28. GEMCITABINE. [Suspect]
     Active Substance: GEMCITABINE
     Route: 065
     Dates: start: 20190329
  29. GEMCITABINE. [Suspect]
     Active Substance: GEMCITABINE
     Route: 065
     Dates: start: 20190412
  30. PROCHLORPERAZINE. [Concomitant]
     Active Substance: PROCHLORPERAZINE
     Indication: NAUSEA
     Dosage: 10 MILLIGRAM
     Route: 048
     Dates: start: 20181121
  31. ABRAXANE [Suspect]
     Active Substance: PACLITAXEL
     Route: 041
     Dates: start: 20190315
  32. ABRAXANE [Suspect]
     Active Substance: PACLITAXEL
     Route: 041
     Dates: start: 20190329
  33. MEDI4736 (DURVALUMAB) [Suspect]
     Active Substance: DURVALUMAB
     Route: 042
     Dates: start: 20190802
  34. MEDI4736 (DURVALUMAB) [Suspect]
     Active Substance: DURVALUMAB
     Route: 042
     Dates: start: 20190412
  35. GEMCITABINE. [Suspect]
     Active Substance: GEMCITABINE
     Indication: PANCREATIC CARCINOMA METASTATIC
     Route: 065
     Dates: start: 20190208
  36. GEMCITABINE. [Suspect]
     Active Substance: GEMCITABINE
     Route: 065
     Dates: start: 20190315
  37. GEMCITABINE. [Suspect]
     Active Substance: GEMCITABINE
     Route: 065
     Dates: start: 20190426
  38. GEMCITABINE. [Suspect]
     Active Substance: GEMCITABINE
     Route: 065
     Dates: start: 20190524
  39. ABRAXANE [Suspect]
     Active Substance: PACLITAXEL
     Route: 041
     Dates: start: 20190222
  40. OLECLUMAB. [Suspect]
     Active Substance: OLECLUMAB
     Route: 042
     Dates: start: 20190208
  41. OLECLUMAB. [Suspect]
     Active Substance: OLECLUMAB
     Route: 042
     Dates: start: 20190222
  42. GEMCITABINE. [Suspect]
     Active Substance: GEMCITABINE
     Route: 065
     Dates: start: 20190510
  43. POLYETHYLENE GLYCOL [Concomitant]
     Active Substance: POLYETHYLENE GLYCOLS
     Indication: CONSTIPATION
     Dosage: 17 GRAM
     Route: 048
     Dates: start: 20181111

REACTIONS (2)
  - Acute kidney injury [Recovered/Resolved]
  - Shock [Recovered/Resolved]

NARRATIVE: CASE EVENT DATE: 20190720
